FAERS Safety Report 7518969-5 (Version None)
Quarter: 2011Q2

REPORT INFORMATION
  Report Type: 
  Country: None (occurrence: None)
  Receive Date: 20110523
  Receipt Date: 20110509
  Transmission Date: 20111010
  Serious: Yes (Hospitalization, Other)
  Sender: FDA-Public Use
  Company Number: 2011MA005700

PATIENT
  Age: 64 Year
  Sex: Female
  Weight: 70 kg

DRUGS (6)
  1. MIDAZOLAM HCL [Concomitant]
  2. VECURONIUM BROMIDE [Concomitant]
  3. PROPOFOL [Concomitant]
  4. LIDOCAINE [Suspect]
     Indication: ANAESTHESIA
     Dosage: 1X
  5. FENTANYL [Concomitant]
  6. SEVOFLURANE [Concomitant]

REACTIONS (2)
  - BRONCHOSPASM [None]
  - ACCIDENTAL EXPOSURE [None]
